FAERS Safety Report 5121934-9 (Version None)
Quarter: 2006Q4

REPORT INFORMATION
  Report Type: 
  Country: None (occurrence: None)
  Receive Date: 20061006
  Receipt Date: 20060926
  Transmission Date: 20070319
  Serious: Yes (Other)
  Sender: FDA-Public Use
  Company Number: 2006UW18852

PATIENT
  Age: 86 Year
  Sex: Female
  Weight: 90.3 kg

DRUGS (5)
  1. FASLODEX [Suspect]
     Indication: BREAST CANCER FEMALE
     Route: 030
     Dates: start: 20060901
  2. COUMADIN [Concomitant]
  3. POTASSIUM [Concomitant]
  4. UNSPECIFIED BLOOD PRESSURE MEDICATION [Concomitant]
     Indication: BLOOD PRESSURE
  5. UNSPECIFIED PAIN MEDICATION [Concomitant]
     Indication: PAIN

REACTIONS (2)
  - PROTHROMBIN TIME SHORTENED [None]
  - VITAMIN B12 INCREASED [None]
